FAERS Safety Report 15939498 (Version 2)
Quarter: 2019Q1

REPORT INFORMATION
  Report Type: Report from Study
  Country: BE (occurrence: BE)
  Receive Date: 20190208
  Receipt Date: 20190227
  Transmission Date: 20190417
  Serious: Yes (Life-Threatening, Hospitalization)
  Sender: FDA-Public Use
  Company Number: BE-EISAI MEDICAL RESEARCH-EC-2019-051510

PATIENT
  Age: 70 Year
  Sex: Female
  Weight: 52 kg

DRUGS (8)
  1. ZOVIRAX [Concomitant]
     Active Substance: ACYCLOVIR
  2. ASAFLOW [Concomitant]
     Active Substance: ASPIRIN
  3. L THYROXINE [Concomitant]
     Active Substance: LEVOTHYROXINE SODIUM
  4. PANTOMED (PANTOPRAZOLE SODIUM SESQUIHYDRATE) [Concomitant]
     Active Substance: PANTOPRAZOLE SODIUM
  5. BELSAR (OLMESARTAN MEDOXOMIL) [Concomitant]
     Active Substance: OLMESARTAN MEDOXOMIL
  6. LENVATINIB [Suspect]
     Active Substance: LENVATINIB
     Indication: THYROID CANCER
     Dosage: BLINDED DOSAGE
     Route: 048
     Dates: start: 20190131, end: 20190202
  7. EMCONCOR [Concomitant]
     Active Substance: BISOPROLOL FUMARATE
  8. CLEXANE [Concomitant]
     Active Substance: ENOXAPARIN SODIUM

REACTIONS (2)
  - Atrial fibrillation [Unknown]
  - Myocarditis [Unknown]

NARRATIVE: CASE EVENT DATE: 20190202
